FAERS Safety Report 6945502-9 (Version None)
Quarter: 2010Q3

REPORT INFORMATION
  Report Type: 
  Country: None (occurrence: None)
  Receive Date: 20100827
  Receipt Date: 20100820
  Transmission Date: 20110219
  Serious: Yes (Hospitalization)
  Sender: FDA-Public Use
  Company Number: JP-SANOFI-AVENTIS-2010SA044633

PATIENT
  Age: 59 Year
  Sex: Male
  Weight: 64.1 kg

DRUGS (5)
  1. PLAVIX [Suspect]
     Indication: CAROTID ARTERY STENOSIS
     Route: 048
     Dates: start: 20100616, end: 20100618
  2. OZAGREL SODIUM [Suspect]
     Route: 041
     Dates: start: 20100615, end: 20100621
  3. TAKEPRON [Suspect]
     Route: 048
     Dates: start: 20100616, end: 20100618
  4. LIPITOR [Suspect]
     Route: 048
     Dates: start: 20100616, end: 20100618
  5. ASPIRIN [Concomitant]
     Route: 048

REACTIONS (5)
  - ALANINE AMINOTRANSFERASE INCREASED [None]
  - ASPARTATE AMINOTRANSFERASE INCREASED [None]
  - GAMMA-GLUTAMYLTRANSFERASE INCREASED [None]
  - HEPATIC FUNCTION ABNORMAL [None]
  - OFF LABEL USE [None]
